FAERS Safety Report 8491871-0 (Version None)
Quarter: 2012Q3

REPORT INFORMATION
  Report Type: 
  Country: None (occurrence: None)
  Receive Date: 20120706
  Receipt Date: 20110831
  Transmission Date: 20120928
  Serious: No
  Sender: FDA-Public Use
  Company Number: US-GLAXOSMITHKLINE-A0943010A

PATIENT
  Age: 70 Year
  Sex: Female

DRUGS (5)
  1. FAMOTIDINE [Concomitant]
  2. ARIMIDEX [Concomitant]
  3. PROPRANOLOL [Concomitant]
  4. SPIRIVA [Concomitant]
  5. FLOVENT [Suspect]
     Indication: EMPHYSEMA
     Dosage: 2PUFF PER DAY
     Route: 055
     Dates: start: 20100301

REACTIONS (2)
  - ORAL CANDIDIASIS [None]
  - GLOSSODYNIA [None]
